FAERS Safety Report 16881046 (Version 1)
Quarter: 2019Q4

REPORT INFORMATION
  Report Type: Spontaneous
  Country: US (occurrence: US)
  Receive Date: 20190807
  Receipt Date: 20190807
  Transmission Date: 20200122
  Serious: Yes (Hospitalization)
  Sender: FDA-Public Use
  Company Number: None

PATIENT
  Age: 64 Year
  Sex: Female
  Weight: 62.27 kg

DRUGS (1)
  1. OLAPARIB. [Suspect]
     Active Substance: OLAPARIB

REACTIONS (5)
  - Bacterial infection [None]
  - Obstruction [None]
  - Liver function test abnormal [None]
  - Stent placement [None]
  - Blood culture positive [None]

NARRATIVE: CASE EVENT DATE: 20190721
